FAERS Safety Report 5278930-0 (Version None)
Quarter: 2007Q1

REPORT INFORMATION
  Report Type: 
  Country: None (occurrence: None)
  Receive Date: 20070328
  Receipt Date: 20070316
  Transmission Date: 20070707
  Serious: Yes (Hospitalization, Disabling)
  Sender: FDA-Public Use
  Company Number: CH-ROCHE-488084

PATIENT
  Age: 60 Year
  Sex: Male

DRUGS (2)
  1. PEGASYS [Suspect]
     Indication: MALIGNANT MELANOMA
     Dosage: FORM :INJECTION.
     Route: 058
     Dates: start: 20050624, end: 20050816
  2. PEGASYS [Suspect]
     Route: 058
     Dates: start: 20050816, end: 20050819

REACTIONS (10)
  - ANAEMIA [None]
  - DYSPNOEA [None]
  - HEADACHE [None]
  - HYPERTENSION [None]
  - MYALGIA [None]
  - OEDEMA PERIPHERAL [None]
  - POLYSEROSITIS [None]
  - RENAL FAILURE [None]
  - THROMBOSIS [None]
  - WEIGHT INCREASED [None]
